FAERS Safety Report 7992495-1 (Version None)
Quarter: 2011Q4

REPORT INFORMATION
  Report Type: 
  Country: None (occurrence: None)
  Receive Date: 20111219
  Receipt Date: 20111215
  Transmission Date: 20120403
  Serious: Yes (Other)
  Sender: FDA-Public Use
  Company Number: NO-PFIZER INC-2011306000

PATIENT
  Sex: Female

DRUGS (4)
  1. LIPITOR [Suspect]
     Indication: ISCHAEMIC HEART DISEASE PROPHYLAXIS
     Dosage: 40 MG, UNK
     Route: 048
     Dates: start: 20100101, end: 20110101
  2. ATACAND HCT [Concomitant]
  3. PLAVIX [Concomitant]
  4. AMLODIPINE [Concomitant]

REACTIONS (4)
  - MUSCULAR WEAKNESS [None]
  - PYREXIA [None]
  - CHEST DISCOMFORT [None]
  - MYALGIA [None]
